FAERS Safety Report 23058344 (Version 3)
Quarter: 2025Q3

REPORT INFORMATION
  Report Type: Spontaneous
  Country: US (occurrence: US)
  Receive Date: 20231012
  Receipt Date: 20250821
  Transmission Date: 20251021
  Serious: No
  Sender: PFIZER
  Company Number: US-PFIZER INC-PV202300167989

PATIENT
  Age: 71 Year
  Sex: Female

DRUGS (1)
  1. XELJANZ XR [Suspect]
     Active Substance: TOFACITINIB CITRATE

REACTIONS (5)
  - Blood cholesterol abnormal [Unknown]
  - Arthritis [Unknown]
  - Sleep disorder [Unknown]
  - Dyspnoea [Unknown]
  - Brain fog [Unknown]

NARRATIVE: CASE EVENT DATE: 20250601
